FAERS Safety Report 4414177-5 (Version None)
Quarter: 2004Q3

REPORT INFORMATION
  Report Type: 
  Country: None (occurrence: None)
  Receive Date: 20040728
  Receipt Date: 20040719
  Transmission Date: 20050211
  Serious: Yes (Death)
  Sender: FDA-Public Use
  Company Number: FRWYE805704JUN04

PATIENT
  Age: 17 Year
  Sex: Male

DRUGS (9)
  1. TAZOCILLINE (PIPERACILLIN/TAZOBACTAM, INJECTION) [Suspect]
     Dosage: INTRAVENOUS
     Route: 042
     Dates: start: 20040428, end: 20040508
  2. AMINO ACIDS (AMINO ACIDS, ,0) [Suspect]
     Dosage: SEE IMAGE
     Route: 051
     Dates: start: 20040410, end: 20040415
  3. AMINO ACIDS (AMINO ACIDS, ,0) [Suspect]
     Dosage: SEE IMAGE
     Route: 051
     Dates: start: 20040508, end: 20040508
  4. BUMETANIDE [Suspect]
     Dates: start: 20040415, end: 20040508
  5. MABTHERA (RITUXIMAB, ,0) [Suspect]
     Dates: start: 20040501, end: 20040508
  6. NOVOSEVEN [Suspect]
     Dates: start: 20040419, end: 20040506
  7. TARGOCID [Suspect]
     Dates: start: 20040428, end: 20040508
  8. FLUCONAZOLE [Suspect]
     Dates: start: 20040428, end: 20040508
  9. RED BLOOD CELLS [Concomitant]

REACTIONS (12)
  - CHOLECYSTECTOMY [None]
  - COMA [None]
  - CONDITION AGGRAVATED [None]
  - DIALYSIS [None]
  - ENCEPHALOPATHY [None]
  - HYPERAMMONAEMIA [None]
  - LARGE INTESTINE PERFORATION [None]
  - LEUKOPENIA [None]
  - PERITONITIS [None]
  - SPLENECTOMY [None]
  - STATUS EPILEPTICUS [None]
  - THROMBOCYTOPENIA [None]
